APPROVED DRUG PRODUCT: SIMVASTATIN
Active Ingredient: SIMVASTATIN
Strength: 5MG
Dosage Form/Route: TABLET;ORAL
Application: A076285 | Product #001
Applicant: SUN PHARMACEUTICAL INDUSTRIES LTD
Approved: Dec 20, 2006 | RLD: No | RS: No | Type: DISCN